FAERS Safety Report 5715456-1 (Version None)
Quarter: 2008Q2

REPORT INFORMATION
  Report Type: 
  Country: None (occurrence: None)
  Receive Date: 20080422
  Receipt Date: 20080410
  Transmission Date: 20081010
  Serious: Yes (Hospitalization)
  Sender: FDA-Public Use
  Company Number: 233436J08USA

PATIENT
  Age: 56 Year
  Sex: Female
  Weight: 95.2554 kg

DRUGS (9)
  1. REBIF [Suspect]
     Indication: MULTIPLE SCLEROSIS
     Dosage: 44 MCG, 3 IN 1 WEEKS, SUBCUTANEOUS
     Route: 058
     Dates: start: 20070714
  2. CYMBALTA [Suspect]
     Indication: NEURALGIA
     Dates: start: 20060101
  3. LAMICTAL [Suspect]
     Indication: BIPOLAR DISORDER
     Dates: start: 20050101
  4. LAMICTAL [Suspect]
     Indication: DEPRESSION
     Dates: start: 20050101
  5. LAMICTAL [Suspect]
     Indication: POST-TRAUMATIC STRESS DISORDER
     Dates: start: 20050101
  6. SERZONE [Concomitant]
  7. PROVIGIL [Concomitant]
  8. AMBIEN [Concomitant]
  9. AMARYL [Concomitant]

REACTIONS (8)
  - ACUTE MYOCARDIAL INFARCTION [None]
  - FATIGUE [None]
  - HYPERLIPIDAEMIA [None]
  - HYPERTENSION [None]
  - INITIAL INSOMNIA [None]
  - MENTAL DISORDER [None]
  - NEURALGIA [None]
  - TYPE 2 DIABETES MELLITUS [None]
